FAERS Safety Report 17008954 (Version 1)
Quarter: 2019Q4

REPORT INFORMATION
  Report Type: Spontaneous
  Country: CN (occurrence: CN)
  Receive Date: 20191108
  Receipt Date: 20191108
  Transmission Date: 20200122
  Serious: Yes (Other)
  Sender: FDA-Public Use
  Company Number: CN-BAXTER-2019BAX022405

PATIENT
  Age: 62 Year
  Sex: Female
  Weight: 55 kg

DRUGS (16)
  1. ENDOXAN [Suspect]
     Active Substance: CYCLOPHOSPHAMIDE
     Dosage: DOSE RE-INTRODUCED. ENDOXAN + 0.9% SODIUM CHLORIDE
     Route: 041
  2. SODIUM CHLORIDE. [Suspect]
     Active Substance: SODIUM CHLORIDE
     Dosage: CYTARABINE HYDROCHLORIDE 100 MG + 0.9% SODIUM CHLORIDE 250 ML, ON DAYS 1 TO 7
     Route: 041
     Dates: start: 20190927, end: 20191003
  3. VINCRISTINE SULFATE. [Suspect]
     Active Substance: VINCRISTINE SULFATE
     Indication: ACUTE LYMPHOCYTIC LEUKAEMIA
     Dosage: VINCRISTINE SULFATE 2 MG + 0.9% SODIUM CHLORIDE 20 ML
     Route: 041
     Dates: start: 20190927, end: 20190927
  4. SODIUM CHLORIDE. [Suspect]
     Active Substance: SODIUM CHLORIDE
     Dosage: DOSE RE-INTRODUCED. ENDOXAN + 0.9% SODIUM CHLORIDE
     Route: 041
  5. SODIUM CHLORIDE. [Suspect]
     Active Substance: SODIUM CHLORIDE
     Dosage: DOSE RE-INTRODUCED. CYTARABINE HYDROCHLORIDE + 0.9% SODIUM CHLORIDE
     Route: 041
     Dates: start: 201910
  6. SODIUM CHLORIDE. [Suspect]
     Active Substance: SODIUM CHLORIDE
     Dosage: DOSE RE-INTRODUCED. ETOPOSIDE + 0.9% SODIUM CHLORIDE
     Route: 041
  7. ENDOXAN [Suspect]
     Active Substance: CYCLOPHOSPHAMIDE
     Indication: ACUTE LYMPHOCYTIC LEUKAEMIA
     Dosage: ENDOXAN 1 G + 0.9% SODIUM CHLORIDE 500 ML
     Route: 041
     Dates: start: 20190927, end: 20190927
  8. CYTARABINE HYDROCHLORIDE [Suspect]
     Active Substance: CYTARABINE HYDROCHLORIDE
     Indication: ACUTE LYMPHOCYTIC LEUKAEMIA
     Dosage: CYTARABINE HYDROCHLORIDE 100 MG + 0.9% SODIUM CHLORIDE 250 ML, ON DAYS 1 TO 7
     Route: 041
     Dates: start: 20190927, end: 20191003
  9. VINCRISTINE SULFATE. [Suspect]
     Active Substance: VINCRISTINE SULFATE
     Dosage: DOSE RE-INTRODUCED. VINCRISTINE SULFATE + 0.9% SODIUM CHLORIDE
     Route: 041
  10. ETOPOSIDE. [Suspect]
     Active Substance: ETOPOSIDE
     Dosage: DOSE RE-INTRODUCED. ETOPOSIDE + 0.9% SODIUM CHLORIDE
     Route: 041
  11. CYTARABINE HYDROCHLORIDE [Suspect]
     Active Substance: CYTARABINE HYDROCHLORIDE
     Dosage: DOSE RE-INTRODUCED. CYTARABINE HYDROCHLORIDE + 0.9% SODIUM CHLORIDE
     Route: 041
     Dates: start: 201910
  12. SODIUM CHLORIDE. [Suspect]
     Active Substance: SODIUM CHLORIDE
     Indication: MEDICATION DILUTION
     Dosage: ENDOXAN 1 G + 0.9% SODIUM CHLORIDE 500 ML
     Route: 041
     Dates: start: 20190927, end: 20190927
  13. SODIUM CHLORIDE. [Suspect]
     Active Substance: SODIUM CHLORIDE
     Dosage: VINCRISTINE SULFATE 2 MG + 0.9% SODIUM CHLORIDE 20 ML
     Route: 041
     Dates: start: 20190927, end: 20190927
  14. SODIUM CHLORIDE. [Suspect]
     Active Substance: SODIUM CHLORIDE
     Dosage: DOSE RE-INTRODUCED. VINCRISTINE SULFATE + 0.9% SODIUM CHLORIDE
     Route: 041
  15. ETOPOSIDE. [Suspect]
     Active Substance: ETOPOSIDE
     Indication: ACUTE LYMPHOCYTIC LEUKAEMIA
     Dosage: ETOPOSIDE 100 MG + 0.9% SODIUM CHLORIDE 500 ML, ON DAYS 1 TO 3
     Route: 041
     Dates: start: 20190927, end: 20190929
  16. SODIUM CHLORIDE. [Suspect]
     Active Substance: SODIUM CHLORIDE
     Dosage: ETOPOSIDE 100 MG + 0.9% SODIUM CHLORIDE 500 ML, ON DAYS 1 TO 3
     Route: 041
     Dates: start: 20190927, end: 20190929

REACTIONS (4)
  - Temperature intolerance [Recovering/Resolving]
  - Pyrexia [Recovering/Resolving]
  - Chills [Recovering/Resolving]
  - Cytopenia [Recovering/Resolving]

NARRATIVE: CASE EVENT DATE: 20191004
